FAERS Safety Report 15613748 (Version 1)
Quarter: 2018Q4

REPORT INFORMATION
  Report Type: Report from Study
  Country: FR (occurrence: FR)
  Receive Date: 20181113
  Receipt Date: 20181113
  Transmission Date: 20190205
  Serious: Yes (Hospitalization)
  Sender: FDA-Public Use
  Company Number: FR-PURDUE PHARMA-GBR-2018-0061534

PATIENT
  Age: 24 Year
  Sex: Male

DRUGS (7)
  1. HYDROXYZINE [Concomitant]
     Active Substance: HYDROXYZINE HYDROCHLORIDE
  2. CITALOPRAM [Concomitant]
     Active Substance: CITALOPRAM HYDROBROMIDE
  3. AMYL NITRITE. [Suspect]
     Active Substance: AMYL NITRITE
     Indication: PRODUCT USED FOR UNKNOWN INDICATION
     Dosage: UNK (4 POWERFUL INHALATIONS)
     Route: 055
  4. NON-PMN BUPRENORPHINE [Suspect]
     Active Substance: BUPRENORPHINE
     Indication: PRODUCT USED FOR UNKNOWN INDICATION
     Route: 065
  5. ZOPICLONE [Suspect]
     Active Substance: ZOPICLONE
     Indication: PRODUCT USED FOR UNKNOWN INDICATION
     Route: 065
  6. ZOLPIDEM TARTRATE. [Suspect]
     Active Substance: ZOLPIDEM TARTRATE
     Indication: PRODUCT USED FOR UNKNOWN INDICATION
     Route: 065
  7. OXAZEPAM. [Suspect]
     Active Substance: OXAZEPAM
     Indication: PRODUCT USED FOR UNKNOWN INDICATION
     Route: 065

REACTIONS (8)
  - Tachyphrenia [Recovering/Resolving]
  - Agitation [Recovering/Resolving]
  - Methaemoglobinaemia [Recovered/Resolved]
  - Dysstasia [Recovering/Resolving]
  - Skin discolouration [Recovering/Resolving]
  - Logorrhoea [Recovering/Resolving]
  - Muscular weakness [Recovering/Resolving]
  - Somnolence [Recovering/Resolving]
